FAERS Safety Report 9377966 (Version 2)
Quarter: 2013Q3

REPORT INFORMATION
  Report Type: Report from Study
  Country: DE (occurrence: DE)
  Receive Date: 20130701
  Receipt Date: 20130712
  Transmission Date: 20140515
  Serious: Yes (Hospitalization)
  Sender: FDA-Public Use
  Company Number: DE-BAXTER-2013BAX023681

PATIENT
  Sex: Female

DRUGS (11)
  1. ENDOXAN 1G [Suspect]
     Indication: HER-2 POSITIVE BREAST CANCER
     Route: 042
     Dates: start: 20130204
  2. ENDOXAN 1G [Suspect]
     Route: 042
     Dates: start: 20130408
  3. PERTUZUMAB [Suspect]
     Indication: HER-2 POSITIVE BREAST CANCER
     Route: 042
     Dates: start: 20130429
  4. PERTUZUMAB [Suspect]
     Route: 042
     Dates: start: 20130523
  5. TRASTUZUMAB [Suspect]
     Indication: HER-2 POSITIVE BREAST CANCER
     Route: 042
     Dates: start: 20130429
  6. TRASTUZUMAB [Suspect]
     Route: 042
     Dates: start: 20130523
  7. TRASTUZUMAB [Suspect]
     Route: 042
  8. EPIRUBICIN [Suspect]
     Indication: HER-2 POSITIVE BREAST CANCER
     Route: 042
     Dates: start: 20130204
  9. EPIRUBICIN [Suspect]
     Route: 042
     Dates: start: 20130408
  10. PACLITAXEL [Suspect]
     Indication: HER-2 POSITIVE BREAST CANCER
     Route: 042
     Dates: start: 20130429
  11. PACLITAXEL [Suspect]
     Route: 042
     Dates: start: 20130530

REACTIONS (1)
  - Venous thrombosis limb [Not Recovered/Not Resolved]
